FAERS Safety Report 8821289 (Version 1)
Quarter: 2012Q4

REPORT INFORMATION
  Report Type: Report from Study
  Country: ES (occurrence: ES)
  Receive Date: 20121002
  Receipt Date: 20121002
  Transmission Date: 20130627
  Serious: Yes (Death)
  Sender: FDA-Public Use
  Company Number: ES-TEVA-361553USA

PATIENT
  Age: 63 Year
  Sex: Male

DRUGS (5)
  1. TREANDA [Suspect]
     Indication: CHRONIC LYMPHOCYTIC LEUKAEMIA
     Dosage: 300 DF, Cyclic
     Route: 042
     Dates: start: 20110512
  2. RITUXIMAB [Suspect]
     Indication: CHRONIC LYMPHOCYTIC LEUKAEMIA
     Dosage: 800 DF, Cyclic
     Route: 042
     Dates: start: 20110512, end: 20110706
  3. PREDNISONE [Concomitant]
  4. FOLIC ACID [Concomitant]
  5. B1-6-12 (CYANOCOBALAMIN, PYRIDOXINE HYDROCHLORIDE [Concomitant]

REACTIONS (2)
  - Febrile neutropenia [Fatal]
  - Sepsis [Fatal]
